FAERS Safety Report 23932509 (Version 1)
Quarter: 2024Q2

REPORT INFORMATION
  Report Type: Spontaneous
  Country: US (occurrence: US)
  Receive Date: 20240603
  Receipt Date: 20240603
  Transmission Date: 20240716
  Serious: Yes (Other)
  Sender: FDA-Public Use
  Company Number: US-BRISTOL-MYERS SQUIBB COMPANY-2024-086643

PATIENT
  Age: 61 Year
  Sex: Female
  Weight: 53.3 kg

DRUGS (4)
  1. OPDIVO [Suspect]
     Active Substance: NIVOLUMAB
     Indication: Pulmonary mass
     Dosage: DOSE : OPD: 160MG / YERVOY: 55MG;     FREQ : OPDIVO: EVERY 2 WEEKS, YERVOY: EVERY 6 WEEKS
     Route: 042
     Dates: start: 20231121, end: 20240507
  2. OPDIVO [Suspect]
     Active Substance: NIVOLUMAB
     Indication: Neoplasm malignant
  3. YERVOY [Suspect]
     Active Substance: IPILIMUMAB
     Indication: Pulmonary mass
     Route: 042
     Dates: start: 20231121, end: 20240326
  4. YERVOY [Suspect]
     Active Substance: IPILIMUMAB
     Indication: Neoplasm malignant

REACTIONS (2)
  - Malignant neoplasm progression [Unknown]
  - Off label use [Unknown]
